FAERS Safety Report 12475645 (Version 5)
Quarter: 2016Q3

REPORT INFORMATION
  Report Type: Spontaneous
  Country: JP (occurrence: JP)
  Receive Date: 20160617
  Receipt Date: 20160823
  Transmission Date: 20161109
  Serious: Yes (Life-Threatening, Hospitalization, Other)
  Sender: FDA-Public Use
  Company Number: JP-009507513-1606JPN006566

PATIENT
  Age: 69 Year
  Sex: Male
  Weight: 60 kg

DRUGS (10)
  1. ZYPREXA [Concomitant]
     Active Substance: OLANZAPINE
     Indication: RESTLESSNESS
     Dosage: 2.5 MG, ONCE A DAY
     Route: 048
     Dates: start: 20160307, end: 20160430
  2. INTERFERON BETA NOS [Concomitant]
     Active Substance: INTERFERON BETA
     Indication: MALIGNANT GLIOMA
     Dosage: DAILY DOSAGE UNKNOWN
     Route: 051
  3. E KEPPRA [Suspect]
     Active Substance: LEVETIRACETAM
     Indication: PROPHYLAXIS
     Dosage: 500 MG, TWICE DAILY
     Route: 048
     Dates: start: 20151211, end: 20160315
  4. TEMODAL [Suspect]
     Active Substance: TEMOZOLOMIDE
     Indication: MALIGNANT GLIOMA
     Dosage: 75 MG/M2, DAILY, DIVIDED DOSE, FREQUENCY UNKNOWN
     Route: 048
     Dates: start: 20160114, end: 20160226
  5. LANSOPRAZOLE. [Suspect]
     Active Substance: LANSOPRAZOLE
     Indication: PROPHYLAXIS
     Dosage: 15 MG, ONCE DAILY
     Route: 048
     Dates: start: 20160113, end: 20160323
  6. NASEA [Suspect]
     Active Substance: RAMOSETRON HYDROCHLORIDE
     Indication: PROPHYLAXIS
     Dosage: 0.1 MG, ONCE DAILY
     Route: 048
     Dates: start: 20160113, end: 20160226
  7. REMERON [Concomitant]
     Active Substance: MIRTAZAPINE
     Indication: DEPRESSION
     Dosage: 15 MG, QD
     Route: 048
     Dates: start: 20160307, end: 20160425
  8. ONCOVIN [Concomitant]
     Active Substance: VINCRISTINE SULFATE
     Indication: MALIGNANT GLIOMA
     Dosage: 1 MG, BID
     Route: 051
  9. HERBAL NOS [Suspect]
     Active Substance: HERBALS
     Indication: DECREASED APPETITE
     Dosage: 2.5 G, TID
     Route: 048
     Dates: start: 20160114, end: 20160302
  10. BAKTAR [Suspect]
     Active Substance: SULFAMETHOXAZOLE\TRIMETHOPRIM
     Indication: PROPHYLAXIS
     Dosage: 1 DOSAGE FORM, TWICE DAILY
     Route: 048
     Dates: start: 20160113, end: 2016

REACTIONS (7)
  - Affective disorder [Recovering/Resolving]
  - Nausea [Recovering/Resolving]
  - Aplasia pure red cell [Not Recovered/Not Resolved]
  - Malaise [Recovering/Resolving]
  - Decreased appetite [Not Recovered/Not Resolved]
  - Pancytopenia [Recovering/Resolving]
  - Depression [Recovering/Resolving]

NARRATIVE: CASE EVENT DATE: 20160201
